FAERS Safety Report 6578167-9 (Version None)
Quarter: 2010Q1

REPORT INFORMATION
  Report Type: 
  Country: None (occurrence: None)
  Receive Date: 20100211
  Receipt Date: 20100129
  Transmission Date: 20100710
  Serious: Yes (Hospitalization)
  Sender: FDA-Public Use
  Company Number: JP-ROCHE-681874

PATIENT
  Sex: Male

DRUGS (17)
  1. BEVACIZUMAB [Suspect]
     Indication: COLON CANCER
     Dosage: LATENCY OF EVENT AFTER LAST DOSE: 17 MIN
     Route: 041
     Dates: start: 20091022
  2. OXALIPLATIN [Suspect]
     Indication: COLON CANCER
     Dosage: DRUG REPORTED AS: ELPLAT(OXALIPLATIN)
     Route: 041
     Dates: start: 20091022
  3. CALCIUM LEVOFOLINATE [Suspect]
     Indication: COLON CANCER
     Dosage: DRUG REPORTED AS: LEVOFOLINATE(LEVOFOLINATE CALCIUM)
     Route: 041
     Dates: start: 20091022
  4. 5-FU [Concomitant]
     Route: 040
     Dates: start: 20091022
  5. 5-FU [Concomitant]
     Route: 041
     Dates: start: 20091022
  6. GRANISETRON [Concomitant]
     Route: 042
     Dates: start: 20091022
  7. DECADRON [Concomitant]
     Route: 042
     Dates: start: 20091022
  8. NORVASC [Concomitant]
     Route: 048
     Dates: start: 20091119
  9. BLOPRESS [Concomitant]
     Route: 048
     Dates: start: 20091119
  10. MARZULENE S [Concomitant]
     Route: 048
     Dates: start: 20090920
  11. GASMOTIN [Concomitant]
     Route: 048
     Dates: start: 20090920
  12. MIYA BM [Concomitant]
     Route: 048
     Dates: start: 20090914
  13. MAGMITT [Concomitant]
     Route: 048
     Dates: start: 20090914
  14. NAUZELIN [Concomitant]
     Route: 048
     Dates: start: 20091217
  15. MYSLEE [Concomitant]
     Route: 048
     Dates: start: 20091119
  16. KERATINAMIN [Concomitant]
     Dosage: FORM: OINTMENT AND CREAM. NOTE: PROPERLY
     Route: 061
     Dates: start: 20091203
  17. LEUCON [Concomitant]
     Route: 048
     Dates: start: 20090104

REACTIONS (1)
  - HYPERSENSITIVITY [None]
